FAERS Safety Report 7425562 (Version 2)
Quarter: 2013Q1

REPORT INFORMATION
  Report Type: Spontaneous
  Country: US (occurrence: US)
  Receive Date: 20100618
  Receipt Date: 20130116
  Transmission Date: 20140127
  Serious: Yes (Other)
  Sender: FDA-Public Use
  Company Number: US-RB-011584-10

PATIENT
  Age: 20 Year
  Sex: Female

DRUGS (2)
  1. SUBUTEX [Suspect]
     Indication: DRUG DEPENDENCE
     Dosage: 4 MG INITIAL DOSE
     Route: 060
     Dates: start: 20100609, end: 20100609
  2. SUBUTEX [Suspect]
     Route: 060
     Dates: start: 20100610, end: 20100610

REACTIONS (4)
  - Abortion spontaneous [Recovered/Resolved]
  - Vaginal haemorrhage [Recovered/Resolved]
  - Abdominal pain upper [Recovered/Resolved]
  - Exposure during pregnancy [Recovered/Resolved]
